FAERS Safety Report 9057068 (Version 1)
Quarter: 2013Q1

REPORT INFORMATION
  Report Type: Spontaneous
  Country: FR (occurrence: FR)
  Receive Date: 20130131
  Receipt Date: 20130131
  Transmission Date: 20140127
  Serious: Yes (Hospitalization)
  Sender: FDA-Public Use
  Company Number: FR-PFIZER INC-2013029002

PATIENT
  Age: 45 Year
  Sex: Male

DRUGS (15)
  1. LANTHANUM CARBONATE [Concomitant]
  2. KAYEXALATE [Concomitant]
  3. LOXEN [Concomitant]
  4. RIVOTRIL [Concomitant]
  5. TAHOR [Concomitant]
  6. TRANDATE [Concomitant]
  7. UVEDOSE [Concomitant]
  8. ZYLORIC [Concomitant]
  9. VENOFER [Concomitant]
  10. ZYVOXID [Suspect]
     Indication: STAPHYLOCOCCAL SEPSIS
     Dosage: UNK
     Route: 042
     Dates: start: 20100307, end: 20100315
  11. VANCOMYCIN [Suspect]
     Indication: STAPHYLOCOCCAL SEPSIS
     Dosage: UNK
     Route: 042
     Dates: start: 20100222, end: 20100307
  12. BACTRIM [Suspect]
     Indication: STAPHYLOCOCCAL SEPSIS
     Dosage: UNK
     Route: 048
     Dates: start: 20100222, end: 20100307
  13. PYOSTACINE [Suspect]
     Indication: STAPHYLOCOCCAL SEPSIS
     Dosage: UNK
     Route: 048
     Dates: start: 20100315, end: 20100317
  14. APROVEL [Concomitant]
  15. CALCIDOSE [Concomitant]

REACTIONS (1)
  - Drug reaction with eosinophilia and systemic symptoms [Recovered/Resolved]
